FAERS Safety Report 19997200 (Version 1)
Quarter: 2021Q4

REPORT INFORMATION
  Report Type: Spontaneous
  Country: JP (occurrence: JP)
  Receive Date: 20211025
  Receipt Date: 20211025
  Transmission Date: 20220303
  Serious: Yes (Other)
  Sender: FDA-Public Use
  Company Number: JP-MTPC-MTPC2021-0025637

PATIENT
  Age: 74 Year
  Sex: Male

DRUGS (2)
  1. EDARAVONE [Suspect]
     Active Substance: EDARAVONE
     Indication: Cerebral infarction
     Route: 065
  2. ASPIRIN [Concomitant]
     Active Substance: ASPIRIN
     Indication: Cerebral infarction
     Route: 065

REACTIONS (1)
  - Haemorrhagic infarction [Unknown]
